FAERS Safety Report 9832956 (Version 2)
Quarter: 2014Q1

REPORT INFORMATION
  Report Type: Report from Study
  Country: JP (occurrence: JP)
  Receive Date: 20140121
  Receipt Date: 20140130
  Transmission Date: 20141002
  Serious: No
  Sender: FDA-Public Use
  Company Number: JP-UCBSA-108641

PATIENT
  Age: 43 Year
  Sex: Male
  Weight: 68 kg

DRUGS (57)
  1. KEPPRA [Suspect]
     Indication: PARTIAL SEIZURES WITH SECONDARY GENERALISATION
     Route: 048
     Dates: start: 20120111, end: 20120227
  2. KEPPRA [Suspect]
     Indication: COMPLEX PARTIAL SEIZURES
     Route: 048
     Dates: start: 20120111, end: 20120227
  3. KEPPRA [Suspect]
     Indication: PARTIAL SEIZURES WITH SECONDARY GENERALISATION
     Route: 048
     Dates: start: 20120228, end: 20120322
  4. KEPPRA [Suspect]
     Indication: COMPLEX PARTIAL SEIZURES
     Route: 048
     Dates: start: 20120228, end: 20120322
  5. KEPPRA [Suspect]
     Indication: PARTIAL SEIZURES WITH SECONDARY GENERALISATION
     Route: 048
     Dates: start: 20120323, end: 20120416
  6. KEPPRA [Suspect]
     Indication: COMPLEX PARTIAL SEIZURES
     Route: 048
     Dates: start: 20120323, end: 20120416
  7. KEPPRA [Suspect]
     Indication: PARTIAL SEIZURES WITH SECONDARY GENERALISATION
     Route: 048
     Dates: start: 20120417, end: 20120509
  8. KEPPRA [Suspect]
     Indication: COMPLEX PARTIAL SEIZURES
     Route: 048
     Dates: start: 20120417, end: 20120509
  9. KEPPRA [Suspect]
     Indication: PARTIAL SEIZURES WITH SECONDARY GENERALISATION
     Route: 048
     Dates: start: 20120510, end: 20120612
  10. KEPPRA [Suspect]
     Indication: COMPLEX PARTIAL SEIZURES
     Route: 048
     Dates: start: 20120510, end: 20120612
  11. KEPPRA [Suspect]
     Indication: PARTIAL SEIZURES WITH SECONDARY GENERALISATION
     Route: 048
     Dates: start: 20120613, end: 20120727
  12. KEPPRA [Suspect]
     Indication: COMPLEX PARTIAL SEIZURES
     Route: 048
     Dates: start: 20120613, end: 20120727
  13. KEPPRA [Suspect]
     Indication: PARTIAL SEIZURES WITH SECONDARY GENERALISATION
     Route: 048
     Dates: start: 20120728, end: 20131120
  14. KEPPRA [Suspect]
     Indication: COMPLEX PARTIAL SEIZURES
     Route: 048
     Dates: start: 20120728, end: 20131120
  15. KEPPRA [Suspect]
     Indication: PARTIAL SEIZURES WITH SECONDARY GENERALISATION
     Route: 048
     Dates: start: 20111220, end: 20120110
  16. KEPPRA [Suspect]
     Indication: COMPLEX PARTIAL SEIZURES
     Route: 048
     Dates: start: 20111220, end: 20120110
  17. MYSTAN [Suspect]
     Indication: PARTIAL SEIZURES
     Dosage: UNKNOWN FREQUENCY
     Route: 048
     Dates: end: 20120726
  18. MYSTAN [Suspect]
     Indication: PARTIAL SEIZURES WITH SECONDARY GENERALISATION
     Dosage: UNKNOWN FREQUENCY
     Route: 048
     Dates: end: 20120726
  19. MYSTAN [Suspect]
     Indication: PARTIAL SEIZURES
     Dosage: UNKNOWN FREQUENCY
     Route: 048
     Dates: start: 20120727, end: 20120827
  20. MYSTAN [Suspect]
     Indication: PARTIAL SEIZURES WITH SECONDARY GENERALISATION
     Dosage: UNKNOWN FREQUENCY
     Route: 048
     Dates: start: 20120727, end: 20120827
  21. MYSTAN [Suspect]
     Indication: PARTIAL SEIZURES
     Dosage: UNKNOWN FREQUENCY
     Route: 048
     Dates: start: 20120828, end: 20120918
  22. MYSTAN [Suspect]
     Indication: PARTIAL SEIZURES WITH SECONDARY GENERALISATION
     Dosage: UNKNOWN FREQUENCY
     Route: 048
     Dates: start: 20120828, end: 20120918
  23. MYSTAN [Suspect]
     Indication: PARTIAL SEIZURES
     Dosage: UNKNOWN FREQUENCY
     Route: 048
     Dates: start: 20120919, end: 20121008
  24. MYSTAN [Suspect]
     Indication: PARTIAL SEIZURES WITH SECONDARY GENERALISATION
     Dosage: UNKNOWN FREQUENCY
     Route: 048
     Dates: start: 20120919, end: 20121008
  25. MYSTAN [Suspect]
     Indication: PARTIAL SEIZURES
     Dosage: UNKNOWN FREQUENCY
     Route: 048
     Dates: start: 20121009, end: 20121014
  26. MYSTAN [Suspect]
     Indication: PARTIAL SEIZURES WITH SECONDARY GENERALISATION
     Dosage: UNKNOWN FREQUENCY
     Route: 048
     Dates: start: 20121009, end: 20121014
  27. MYSTAN [Suspect]
     Indication: PARTIAL SEIZURES
     Dosage: UNKNOWN FREQUENCY
     Route: 048
     Dates: start: 20121015, end: 20121118
  28. MYSTAN [Suspect]
     Indication: PARTIAL SEIZURES WITH SECONDARY GENERALISATION
     Dosage: UNKNOWN FREQUENCY
     Route: 048
     Dates: start: 20121015, end: 20121118
  29. MYSTAN [Suspect]
     Indication: PARTIAL SEIZURES
     Dosage: UNKNOWN FREQUENCY
     Route: 048
     Dates: start: 20121119, end: 20121213
  30. MYSTAN [Suspect]
     Indication: PARTIAL SEIZURES WITH SECONDARY GENERALISATION
     Dosage: UNKNOWN FREQUENCY
     Route: 048
     Dates: start: 20121119, end: 20121213
  31. MYSTAN [Suspect]
     Indication: PARTIAL SEIZURES
     Dosage: UNKNOWN FREQUENCY
     Route: 048
     Dates: start: 20121214
  32. MYSTAN [Suspect]
     Indication: PARTIAL SEIZURES WITH SECONDARY GENERALISATION
     Dosage: UNKNOWN FREQUENCY
     Route: 048
     Dates: start: 20121214
  33. LAMICTAL [Concomitant]
     Dosage: UNKNOWN FREQUENCY
     Route: 048
     Dates: start: 20120323, end: 20120416
  34. LAMICTAL [Concomitant]
     Dosage: UNKNOWN FREQUENCY
     Route: 048
     Dates: start: 20120417, end: 20120508
  35. LAMICTAL [Concomitant]
     Dosage: UNKNOWN FREQUENCY
     Route: 048
     Dates: start: 20120509, end: 20120612
  36. LAMICTAL [Concomitant]
     Dosage: UNKNOWN FREQUENCY
     Route: 048
     Dates: start: 20120613, end: 20130129
  37. LAMICTAL [Concomitant]
     Dosage: UNKNOWN FREQUENCY
     Route: 048
     Dates: start: 20130130, end: 20130303
  38. LAMICTAL [Concomitant]
     Dosage: UNKNOWN FREQUENCY
     Route: 048
     Dates: start: 20130304, end: 20130526
  39. LAMICTAL [Concomitant]
     Dosage: UNKNOWN FREQUENCY
     Route: 048
     Dates: start: 20130527, end: 20130623
  40. LAMICTAL [Concomitant]
     Dosage: UNKNOWN FREQUENCY
     Route: 048
     Dates: start: 20130624, end: 20130728
  41. LAMICTAL [Concomitant]
     Dosage: UNKNOWN FREQUENCY
     Route: 048
     Dates: start: 20130729, end: 20130827
  42. LAMICTAL [Concomitant]
     Dosage: UNKNOWN FREQUENCY
     Route: 048
     Dates: start: 20130828, end: 20130924
  43. LAMICTAL [Concomitant]
     Dosage: UNKNOWN FREQUENCY
     Route: 048
     Dates: start: 20130925, end: 20131008
  44. TOPINA [Concomitant]
     Dosage: UNKNOWN FREQUENCY
     Route: 048
     Dates: end: 20120110
  45. GABAPEN [Concomitant]
     Dosage: UNKNOWN FREQUENCY
     Route: 048
     Dates: start: 20120919, end: 20121015
  46. GABAPEN [Concomitant]
     Dosage: 19-NOV-2012
     Route: 048
     Dates: start: 20121016, end: 20121119
  47. GABAPEN [Concomitant]
     Dosage: UNKNOWN FREQUENCY
     Route: 048
     Dates: start: 20121120, end: 20130103
  48. GABAPEN [Concomitant]
     Dosage: UNKNOWN FREQUENCY
     Route: 048
     Dates: start: 20130104, end: 20130130
  49. GABAPEN [Concomitant]
     Dosage: UNKNOWN FREQUENCY
     Route: 048
     Dates: start: 20130131, end: 20130304
  50. GABAPEN [Concomitant]
     Dosage: UNKNOWN FREQUENCY
     Route: 048
     Dates: start: 20130305, end: 20131120
  51. GABAPEN [Concomitant]
     Dosage: UNKNOWN FREQUENCY
     Route: 048
     Dates: start: 20131121
  52. SELENICA-R [Concomitant]
     Dosage: UNKNOWN FREQUENCY
     Route: 048
     Dates: start: 20130402, end: 20130526
  53. SELENICA-R [Concomitant]
     Dosage: UNKNOWN FREQUENCY
     Route: 048
     Dates: start: 20130527, end: 20130624
  54. SELENICA-R [Concomitant]
     Dosage: UNKNOWN FREQUENCY
     Route: 048
     Dates: start: 20130625, end: 20130729
  55. SELENICA-R [Concomitant]
     Dosage: UNKNOWN FREQUENCY
     Route: 048
     Dates: start: 20130730, end: 20130828
  56. SELENICA-R [Concomitant]
     Dosage: UNKNOWN FREQUENCY
     Route: 048
     Dates: start: 20130829, end: 20131217
  57. SELENICA-R [Concomitant]
     Dosage: UNKNOWN FREQUENCY
     Route: 048
     Dates: start: 20131218

REACTIONS (2)
  - White blood cell count decreased [Recovered/Resolved]
  - Blood creatine phosphokinase increased [Unknown]
